FAERS Safety Report 12990478 (Version 2)
Quarter: 2016Q4

REPORT INFORMATION
  Report Type: Spontaneous
  Country: US (occurrence: US)
  Receive Date: 20161201
  Receipt Date: 20161212
  Transmission Date: 20170207
  Serious: No
  Sender: FDA-Public Use
  Company Number: US-ELI_LILLY_AND_COMPANY-US201607006071

PATIENT
  Sex: Male

DRUGS (1)
  1. CYMBALTA [Suspect]
     Active Substance: DULOXETINE HYDROCHLORIDE
     Indication: PANIC ATTACK
     Dosage: UNK, UNKNOWN
     Route: 048
     Dates: end: 20140429

REACTIONS (8)
  - Mood swings [Unknown]
  - Confusional state [Unknown]
  - Affect lability [Unknown]
  - Memory impairment [Unknown]
  - Euphoric mood [Unknown]
  - Paraesthesia [Unknown]
  - Drug withdrawal syndrome [Unknown]
  - Anxiety [Unknown]
